FAERS Safety Report 8559218-9 (Version None)
Quarter: 2012Q3

REPORT INFORMATION
  Report Type: 
  Country: None (occurrence: None)
  Receive Date: 20120802
  Receipt Date: 20120724
  Transmission Date: 20120928
  Serious: Yes (Hospitalization)
  Sender: FDA-Public Use
  Company Number: US-BRISTOL-MYERS SQUIBB COMPANY-16798621

PATIENT
  Age: 73 Year
  Sex: Male

DRUGS (18)
  1. OMEPRAZOLE [Concomitant]
     Indication: GASTROINTESTINAL ULCER
     Dates: end: 20120722
  2. CALCITRIOL [Concomitant]
  3. SPRYCEL [Suspect]
     Indication: PROGRESSIVE MULTIFOCAL LEUKOENCEPHALOPATHY
  4. FORTAZ [Concomitant]
     Dosage: Q24H OVER 30 MIN
     Route: 042
  5. HYDRALAZINE HCL [Concomitant]
  6. LEVOTHYROXINE SODIUM [Concomitant]
     Dosage: BEFORE BREAKFAST
  7. TOPROL-XL [Concomitant]
  8. NORVASC [Concomitant]
  9. ALTACE [Concomitant]
  10. SODIUM BICARBONATE [Concomitant]
  11. TYLENOL (CAPLET) [Concomitant]
     Dosage: 1DF:325-650MG  Q4H
  12. CALCIUM CARBONATE [Concomitant]
  13. DUONEB [Concomitant]
     Dosage: Q6H
  14. LIPITOR [Concomitant]
     Dosage: MONDAY,WEDNESDAY AND FRIDAY
  15. FERROUS SULFATE TAB [Concomitant]
  16. OMEGA 3 FATTY ACID [Concomitant]
  17. TAMSULOSIN HCL [Concomitant]
  18. COUMADIN [Concomitant]

REACTIONS (3)
  - RENAL FAILURE CHRONIC [None]
  - ANAEMIA [None]
  - URINARY TRACT INFECTION [None]
